FAERS Safety Report 4811431-X (Version None)
Quarter: 2005Q4

REPORT INFORMATION
  Report Type: 
  Country: None (occurrence: None)
  Receive Date: 20051026
  Receipt Date: 20051026
  Transmission Date: 20060501
  Serious: Yes (Other)
  Sender: FDA-Public Use
  Company Number: None

PATIENT
  Age: 54 Year
  Sex: Male

DRUGS (5)
  1. CORICIDIN HBP COUGH + COLD (CHLORPHENIRAMINE MAL/DEX TABLETS [Suspect]
     Indication: NASOPHARYNGITIS
     Dosage: 8 TABS Q24 HR ORAL
     Route: 048
  2. ASPIRIN [Concomitant]
  3. LISINOPRIL [Concomitant]
  4. CLOPIDOGREL [Concomitant]
  5. SIMVASTATIN [Concomitant]

REACTIONS (2)
  - HALLUCINATION, AUDITORY [None]
  - PARANOIA [None]
